FAERS Safety Report 13398355 (Version 3)
Quarter: 2017Q2

REPORT INFORMATION
  Report Type: Spontaneous
  Country: US (occurrence: US)
  Receive Date: 20170403
  Receipt Date: 20170525
  Transmission Date: 20170830
  Serious: No
  Sender: FDA-Public Use
  Company Number: US-PFIZER INC-2017140086

PATIENT
  Age: 86 Year
  Sex: Female
  Weight: 97 kg

DRUGS (9)
  1. DOFETILIDE. [Suspect]
     Active Substance: DOFETILIDE
     Indication: MYOCARDIAL INFARCTION
  2. SIMVASTATIN. [Concomitant]
     Active Substance: SIMVASTATIN
     Dosage: 40 MG, 1X/DAY
     Route: 048
     Dates: start: 201206
  3. MAGNESIUM [Concomitant]
     Active Substance: MAGNESIUM
     Dosage: 400 MG, 1X/DAY
     Route: 048
     Dates: start: 201507
  4. XARELTO [Concomitant]
     Active Substance: RIVAROXABAN
     Indication: ANTICOAGULANT THERAPY
     Dosage: 20 MG, 1X/DAY
     Route: 048
     Dates: start: 201303
  5. VITAMIN D3 [Concomitant]
     Active Substance: CHOLECALCIFEROL
     Dosage: 1000 IU, 1X/DAY
     Route: 048
     Dates: start: 201409
  6. ENABLEX [Concomitant]
     Active Substance: DARIFENACIN HYDROBROMIDE
     Indication: URINARY INCONTINENCE
     Dosage: 15 MG, 1X/DAY
     Route: 048
     Dates: start: 201106
  7. METFORMIN [Concomitant]
     Active Substance: METFORMIN HYDROCHLORIDE
     Indication: DIABETES MELLITUS
     Dosage: 500MG TABLETS 3 TABLETS ONCE A DAY
     Route: 048
     Dates: start: 200205
  8. LASIX [Concomitant]
     Active Substance: FUROSEMIDE
     Indication: FLUID RETENTION
     Dosage: 40 MG, 1X/DAY
     Route: 048
     Dates: start: 201606
  9. DOFETILIDE. [Suspect]
     Active Substance: DOFETILIDE
     Indication: CARDIAC DISORDER
     Dosage: 250 UG, 2X/DAY
     Route: 048
     Dates: start: 20170209, end: 2017

REACTIONS (2)
  - Burning sensation [Recovered/Resolved]
  - Paraesthesia [Recovered/Resolved]

NARRATIVE: CASE EVENT DATE: 201702
